FAERS Safety Report 7530795-X (Version None)
Quarter: 2011Q2

REPORT INFORMATION
  Report Type: 
  Country: None (occurrence: None)
  Receive Date: 20110607
  Receipt Date: 20110523
  Transmission Date: 20111010
  Serious: Yes (Other)
  Sender: FDA-Public Use
  Company Number: US-AMGEN-USASP2011026864

PATIENT
  Age: 60 Year
  Sex: Male

DRUGS (6)
  1. GEMTUZUMAB OZOGAMICIN [Concomitant]
  2. NEULASTA [Suspect]
  3. INSULIN [Concomitant]
  4. FLUDARABINE PHOSPHATE [Concomitant]
  5. NEUPOGEN [Suspect]
  6. CYTARABINE [Concomitant]

REACTIONS (1)
  - BLAST CELLS PRESENT [None]
